FAERS Safety Report 13853828 (Version 5)
Quarter: 2018Q3

REPORT INFORMATION
  Report Type: Report from Study
  Country: CO (occurrence: CO)
  Receive Date: 20170809
  Receipt Date: 20180710
  Transmission Date: 20181010
  Serious: Yes (Other)
  Sender: FDA-Public Use
  Company Number: PHHY2017CO115606

PATIENT
  Age: 56 Year
  Sex: Male
  Weight: 76 kg

DRUGS (2)
  1. TASIGNA [Suspect]
     Active Substance: NILOTINIB
     Indication: CHRONIC MYELOID LEUKAEMIA
     Dosage: 200 MG, BID (400 MG)
     Route: 048
     Dates: start: 20170210
  2. TASIGNA [Suspect]
     Active Substance: NILOTINIB
     Dosage: 600 MG, QD
     Route: 048

REACTIONS (9)
  - Arthralgia [Unknown]
  - Pyrexia [Unknown]
  - Bone pain [Unknown]
  - C-reactive protein abnormal [Unknown]
  - Dental caries [Unknown]
  - Toothache [Unknown]
  - Viral infection [Unknown]
  - Influenza [Unknown]
  - Abdominal distension [Unknown]

NARRATIVE: CASE EVENT DATE: 201707
